FAERS Safety Report 20742997 (Version 3)
Quarter: 2022Q2

REPORT INFORMATION
  Report Type: Spontaneous
  Country: US (occurrence: US)
  Receive Date: 20220425
  Receipt Date: 20220629
  Transmission Date: 20220721
  Serious: No
  Sender: FDA-Public Use
  Company Number: US-AMGEN-USASP2022068956

PATIENT
  Age: 48 Year
  Sex: Female

DRUGS (9)
  1. OTEZLA [Suspect]
     Active Substance: APREMILAST
     Indication: Psoriasis
     Dosage: 10+ 20 + 30 MG: DRUG LINE ADDED FOR RPO; 10 + 20 + 30 MG:TAKF AS DIRECTED ON PACKAGE
     Route: 048
     Dates: start: 20220318
  2. OTEZLA [Suspect]
     Active Substance: APREMILAST
     Dosage: 30 MILLIGRAM, BID
     Route: 048
     Dates: start: 20220421
  3. FLECAINIDE [Concomitant]
     Active Substance: FLECAINIDE
     Dosage: 50 MILLIGRAM
  4. METOPROLOL TARTRATE [Concomitant]
     Active Substance: METOPROLOL TARTRATE
     Dosage: 25 MILLIGRAM
  5. MONTELUKAST SODIUM [Concomitant]
     Active Substance: MONTELUKAST SODIUM
     Dosage: UNK
  6. XANAX [Concomitant]
     Active Substance: ALPRAZOLAM
     Dosage: 0.25 MILLIGRAM
  7. COLLAGEN [Concomitant]
     Active Substance: COLLAGEN
  8. TRELEGY ELLIPTA [Concomitant]
     Active Substance: FLUTICASONE FUROATE\UMECLIDINIUM BROMIDE\VILANTEROL TRIFENATATE
     Dosage: UNK
  9. VITAMINS [Concomitant]
     Active Substance: VITAMINS
     Dosage: UNK

REACTIONS (6)
  - Product dose omission issue [Not Recovered/Not Resolved]
  - Nausea [Not Recovered/Not Resolved]
  - Bone pain [Not Recovered/Not Resolved]
  - Head injury [Not Recovered/Not Resolved]
  - Psoriasis [Not Recovered/Not Resolved]
  - Vomiting [Not Recovered/Not Resolved]

NARRATIVE: CASE EVENT DATE: 20220101
